FAERS Safety Report 6819383-8 (Version None)
Quarter: 2010Q3

REPORT INFORMATION
  Report Type: 
  Country: None (occurrence: None)
  Receive Date: 20100707
  Receipt Date: 20100628
  Transmission Date: 20110219
  Serious: Yes (Life-Threatening, Hospitalization)
  Sender: FDA-Public Use
  Company Number: FI-PFIZER INC-2010058885

PATIENT
  Age: 49 Year
  Sex: Female

DRUGS (5)
  1. SUTENT [Suspect]
     Indication: RENAL CELL CARCINOMA
     Dosage: 37.5 MG, 1X/DAY
     Route: 048
     Dates: start: 20100329, end: 20100408
  2. OXYCONTIN [Concomitant]
     Indication: WOUND COMPLICATION
     Dosage: 20 MG DAILY
     Route: 048
     Dates: start: 20100322
  3. OXYCODONE HCL [Concomitant]
     Indication: WOUND COMPLICATION
     Dosage: 5-15 MG DAILY AS NEEDED
     Route: 048
     Dates: start: 20100322
  4. LAXOBERON [Concomitant]
     Indication: CONSTIPATION
     Dosage: 10 GTT DAILY
     Route: 048
     Dates: start: 20100322
  5. PIVMECILLINAM [Concomitant]
     Indication: ESCHERICHIA INFECTION
     Dosage: UNK
     Dates: start: 20100406, end: 20100408

REACTIONS (4)
  - ABDOMINAL PAIN UPPER [None]
  - CONVULSION [None]
  - STATUS EPILEPTICUS [None]
  - VOMITING [None]
